FAERS Safety Report 7754175-7 (Version None)
Quarter: 2011Q3

REPORT INFORMATION
  Report Type: 
  Country: None (occurrence: None)
  Receive Date: 20110915
  Receipt Date: 20110901
  Transmission Date: 20111222
  Serious: Yes (Life-Threatening, Hospitalization, Other)
  Sender: FDA-Public Use
  Company Number: US-BAYER-2011-060496

PATIENT
  Age: 72 Year
  Sex: Male
  Weight: 85.3 kg

DRUGS (11)
  1. ACETYLSALICYLIC ACID SRT [Suspect]
     Indication: PROPHYLAXIS
     Dosage: 81 MG, QD
     Route: 048
     Dates: start: 20051101, end: 20110411
  2. AVODART [Concomitant]
     Indication: BENIGN PROSTATIC HYPERPLASIA
     Dosage: UNK
     Dates: start: 20061101
  3. NEXIUM [Concomitant]
     Dosage: UNK
     Dates: start: 20101221
  4. CELECOXIB [Concomitant]
     Dosage: UNK
     Dates: start: 20110708
  5. CRESTOR [Concomitant]
     Indication: HYPERLIPIDAEMIA
     Dosage: UNK
     Dates: start: 20091101
  6. PERINDOPRIL ERBUMINE [Concomitant]
     Indication: HYPERTENSION
     Dosage: UNK
     Dates: start: 20070201
  7. UROXATRAL [Concomitant]
     Indication: BENIGN PROSTATIC HYPERPLASIA
     Dosage: UNK
     Dates: start: 20051101
  8. CELECOXIB [Suspect]
     Indication: OSTEOARTHRITIS
     Dosage: UNK UNK, TID
     Route: 048
     Dates: start: 20101221, end: 20110411
  9. ALLOPURINOL [Suspect]
     Indication: GOUT
     Dosage: 300 MG, QD
     Route: 048
     Dates: start: 20061101
  10. VITAMIN D [Concomitant]
     Indication: PROPHYLAXIS
     Dosage: UNK
     Dates: start: 20091101
  11. ACETYLSALICYLIC ACID SRT [Suspect]
     Dosage: 81 MG, QD
     Dates: start: 20110708

REACTIONS (9)
  - INGUINAL HERNIA, OBSTRUCTIVE [None]
  - ASTHENIA [None]
  - DIVERTICULITIS [None]
  - DIVERTICULUM [None]
  - DIZZINESS [None]
  - ABDOMINAL PAIN [None]
  - GASTROINTESTINAL HAEMORRHAGE [None]
  - RECTAL HAEMORRHAGE [None]
  - HAEMORRHAGIC ANAEMIA [None]
